FAERS Safety Report 17115956 (Version 1)
Quarter: 2019Q4

REPORT INFORMATION
  Report Type: Spontaneous
  Country: US (occurrence: US)
  Receive Date: 20191204
  Receipt Date: 20191204
  Transmission Date: 20200122
  Serious: No
  Sender: FDA-Public Use
  Company Number: None

PATIENT
  Age: 37 Year
  Sex: Male
  Weight: 59.4 kg

DRUGS (1)
  1. BUPROPION XL 150 [Suspect]
     Active Substance: BUPROPION
     Indication: DEPRESSION
     Dosage: ?          QUANTITY:30 CAPSULE(S);?
     Route: 048
     Dates: end: 20191204

REACTIONS (6)
  - Suicidal ideation [None]
  - Insomnia [None]
  - Feeling abnormal [None]
  - Musculoskeletal disorder [None]
  - Product formulation issue [None]
  - Panic attack [None]

NARRATIVE: CASE EVENT DATE: 20191204
